FAERS Safety Report 8320059-9 (Version None)
Quarter: 2012Q2

REPORT INFORMATION
  Report Type: 
  Country: None (occurrence: None)
  Receive Date: 20120427
  Receipt Date: 20120413
  Transmission Date: 20120825
  Serious: Yes (Other)
  Sender: FDA-Public Use
  Company Number: CHPA2012US009324

PATIENT
  Age: 25 Year
  Sex: Male
  Weight: 95 kg

DRUGS (2)
  1. EXCEDRIN (MIGRAINE) [Suspect]
     Dosage: 2 DF, ONCE/SINGLE
     Route: 048
     Dates: start: 20120413, end: 20120413
  2. EXCEDRIN (MIGRAINE) [Suspect]
     Indication: HEADACHE
     Dosage: 0.5-3 DF, PRN
     Route: 048

REACTIONS (11)
  - CONTUSION [None]
  - NECK PAIN [None]
  - UNDERDOSE [None]
  - DIZZINESS [None]
  - OVERDOSE [None]
  - WRONG TECHNIQUE IN DRUG USAGE PROCESS [None]
  - PHARYNGITIS STREPTOCOCCAL [None]
  - MUSCLE STRAIN [None]
  - OFF LABEL USE [None]
  - FEELING ABNORMAL [None]
  - SELF-INDUCED VOMITING [None]
